FAERS Safety Report 10516607 (Version 1)
Quarter: 2014Q4

REPORT INFORMATION
  Report Type: Report from Study
  Country: US (occurrence: US)
  Receive Date: 20141014
  Receipt Date: 20141014
  Transmission Date: 20150528
  Serious: Yes (Other)
  Sender: FDA-Public Use
  Company Number: US-009507513-2010SP048665

PATIENT
  Age: 4 Year
  Sex: Male

DRUGS (1)
  1. RIBAVIRIN. [Suspect]
     Active Substance: RIBAVIRIN
     Indication: EXPOSURE DURING PREGNANCY
     Route: 064
     Dates: start: 2005

REACTIONS (3)
  - Abnormal behaviour [Unknown]
  - Foetal exposure during pregnancy [Unknown]
  - Homicidal ideation [Unknown]
